FAERS Safety Report 8525358-3 (Version None)
Quarter: 2012Q3

REPORT INFORMATION
  Report Type: 
  Country: None (occurrence: None)
  Receive Date: 20120720
  Receipt Date: 20120719
  Transmission Date: 20120928
  Serious: Yes (Hospitalization, Other)
  Sender: FDA-Public Use
  Company Number: PHEH2008US07166

PATIENT
  Sex: Female

DRUGS (58)
  1. KEFLEX [Concomitant]
     Dosage: 500 MG, QID
  2. DOXYCYCLINE [Concomitant]
     Dosage: 100 MG, BID
  3. MORPHINE SULFATE [Concomitant]
  4. LACTULOSE [Concomitant]
  5. DECADRON [Concomitant]
  6. QVAR 40 [Concomitant]
  7. NASAREL [Concomitant]
  8. LIDOCAINE [Concomitant]
  9. ZOFRAN [Concomitant]
  10. HYDROCORTISONE [Concomitant]
     Route: 061
  11. SOLU-MEDROL [Concomitant]
  12. OXYCODONE HCL AND ACETAMINOPHEN [Concomitant]
  13. CHERATUSSIN [Concomitant]
  14. PERIDEX [Concomitant]
  15. NARCAN [Concomitant]
  16. ROMAZICON [Concomitant]
  17. PROAIR (FLUTICASONE PROPIONATE) [Concomitant]
  18. TEMAZEPAM [Concomitant]
  19. MEGESTROL ACETATE [Concomitant]
  20. ZOMETA [Suspect]
     Dates: start: 20010101, end: 20050201
  21. SINGULAIR [Concomitant]
  22. PREDNISONE TAB [Concomitant]
  23. CIPROFLOXACIN [Concomitant]
  24. ANZEMET [Concomitant]
  25. TORADOL [Concomitant]
  26. AMOXICILLIN [Concomitant]
  27. ARIMIDEX [Concomitant]
     Indication: BREAST CANCER
  28. LACTINEX [Concomitant]
  29. ALBUTEROL [Concomitant]
  30. PREVIDENT [Concomitant]
  31. METOCLOPRAMIDE [Concomitant]
  32. METRONIDAZOLE [Concomitant]
  33. LEVAQUIN [Concomitant]
  34. PROCRIT                            /00909301/ [Concomitant]
  35. DIAZEPAM [Concomitant]
  36. SEREVENT [Concomitant]
  37. FASLODEX [Concomitant]
     Indication: BREAST CANCER
  38. AROMASIN [Concomitant]
     Indication: BREAST CANCER
  39. CHEMOTHERAPEUTICS NOS [Concomitant]
  40. XELODA [Concomitant]
     Indication: BREAST CANCER
  41. FENTANYL [Concomitant]
  42. DEMEROL [Concomitant]
  43. TYLENOL [Concomitant]
  44. CEPHALEXIN [Concomitant]
  45. NORCO [Concomitant]
  46. VICODIN [Concomitant]
  47. PROCHLORPERAZINE [Concomitant]
  48. VERSED [Concomitant]
  49. AVELOX [Concomitant]
  50. FUROSEMIDE [Concomitant]
  51. TAXOTERE [Concomitant]
     Indication: BREAST CANCER
  52. IXABEPILONE [Concomitant]
     Indication: BREAST CANCER
  53. FLUID/ELECTROLYTE REPLACEMENT THERAPY [Concomitant]
  54. GEMZAR [Concomitant]
     Indication: BREAST CANCER
  55. NYSTATIN [Concomitant]
  56. ATROPINE [Concomitant]
  57. ENSURE [Concomitant]
  58. TAMOXIFEN CITRATE [Concomitant]
     Indication: BREAST CANCER

REACTIONS (46)
  - PAIN [None]
  - ORAL INFECTION [None]
  - METASTASES TO LUNG [None]
  - ORAL PAPILLOMA [None]
  - TRISMUS [None]
  - PHYSICAL DISABILITY [None]
  - FISTULA DISCHARGE [None]
  - CACHEXIA [None]
  - ATELECTASIS [None]
  - PAIN IN JAW [None]
  - LOOSE TOOTH [None]
  - LYMPHOEDEMA [None]
  - DIZZINESS [None]
  - FATIGUE [None]
  - ABDOMINAL PAIN [None]
  - ANXIETY [None]
  - ANHEDONIA [None]
  - OSTEOMYELITIS [None]
  - PATHOLOGICAL FRACTURE [None]
  - ANAEMIA [None]
  - METASTASES TO RETROPERITONEUM [None]
  - EXPOSED BONE IN JAW [None]
  - PAROTITIS [None]
  - SQUAMOUS CELL CARCINOMA OF SKIN [None]
  - RHINITIS ALLERGIC [None]
  - EXOSTOSIS [None]
  - METASTASES TO BONE [None]
  - POLYNEUROPATHY [None]
  - LYMPHANGITIS [None]
  - INJURY [None]
  - SWELLING [None]
  - BREATH ODOUR [None]
  - JAW FRACTURE [None]
  - ADRENAL INSUFFICIENCY [None]
  - DYSPHAGIA [None]
  - METASTASES TO CHEST WALL [None]
  - CONJUNCTIVAL HAEMORRHAGE [None]
  - SWELLING FACE [None]
  - OSTEONECROSIS OF JAW [None]
  - MENTAL DISORDER [None]
  - TOOTH ABSCESS [None]
  - METASTASES TO LIVER [None]
  - OSTEOPENIA [None]
  - NEOPLASM MALIGNANT [None]
  - PANCYTOPENIA [None]
  - SINUSITIS [None]
